FAERS Safety Report 4967229-5 (Version None)
Quarter: 2006Q2

REPORT INFORMATION
  Report Type: 
  Country: None (occurrence: None)
  Receive Date: 20060410
  Receipt Date: 20060404
  Transmission Date: 20061013
  Serious: Yes (Life-Threatening, Hospitalization)
  Sender: FDA-Public Use
  Company Number: 2006GB00557

PATIENT
  Age: 81 Year
  Sex: Female
  Weight: 40 kg

DRUGS (5)
  1. ZESTORETIC [Suspect]
     Indication: HYPERTENSION
     Route: 048
     Dates: end: 20060310
  2. ALENDRONIC ACID [Concomitant]
     Indication: OSTEOPOROSIS
     Route: 048
     Dates: start: 20010101
  3. SERETIDE [Concomitant]
     Indication: EMPHYSEMA
     Route: 055
     Dates: start: 20051201
  4. ATROVENT [Concomitant]
     Indication: EMPHYSEMA
     Route: 055
     Dates: start: 20051201
  5. SALBUTAMOL [Concomitant]
     Indication: EMPHYSEMA
     Dosage: 1 - 2 PUFFS PRN
     Route: 055
     Dates: start: 20051201

REACTIONS (3)
  - EPISTAXIS [None]
  - PETECHIAE [None]
  - THROMBOCYTOPENIA [None]
